FAERS Safety Report 8997529 (Version 1)
Quarter: 2013Q1

REPORT INFORMATION
  Report Type: Report from Study
  Country: DE (occurrence: DE)
  Receive Date: 20130104
  Receipt Date: 20130104
  Transmission Date: 20140127
  Serious: Yes (Other)
  Sender: FDA-Public Use
  Company Number: DE-TEVA-378979USA

PATIENT
  Age: 71 Year
  Sex: Male

DRUGS (2)
  1. TREANDA [Suspect]
     Indication: MALIGNANT LYMPHOID NEOPLASM
     Dosage: UNKNOWN/D
     Route: 042
     Dates: start: 20110405
  2. RITUXIMAB [Suspect]
     Indication: MALIGNANT LYMPHOID NEOPLASM
     Dosage: UNKNOWN/D
     Route: 042
     Dates: start: 20110404

REACTIONS (1)
  - Syncope [Recovered/Resolved]
